FAERS Safety Report 7561120-6 (Version None)
Quarter: 2011Q2

REPORT INFORMATION
  Report Type: 
  Country: None (occurrence: None)
  Receive Date: 20110621
  Receipt Date: 20110615
  Transmission Date: 20111010
  Serious: Yes (Hospitalization, Other)
  Sender: FDA-Public Use
  Company Number: US-ELI_LILLY_AND_COMPANY-US201002003444

PATIENT
  Sex: Female

DRUGS (5)
  1. LOTENSIN [Concomitant]
     Indication: HYPERTENSION
     Dosage: UNK
     Dates: start: 20011203
  2. GLUCOPHAGE [Concomitant]
     Indication: DIABETES MELLITUS
     Dosage: UNK
     Dates: start: 20010612
  3. BYETTA [Suspect]
     Dosage: UNK, UNKNOWN
     Route: 065
     Dates: start: 20060228, end: 20090626
  4. GLYBURIDE [Concomitant]
     Indication: DIABETES MELLITUS
     Dosage: UNK
     Dates: start: 20010612
  5. HYDROCHLOROTHIAZIDE [Concomitant]
     Indication: HYPERTENSION
     Dosage: UNK
     Dates: start: 20011203

REACTIONS (4)
  - SEPSIS [None]
  - CHOLECYSTITIS ACUTE [None]
  - PANCREATITIS [None]
  - UMBILICAL HERNIA [None]
